FAERS Safety Report 13862485 (Version 1)
Quarter: 2017Q3

REPORT INFORMATION
  Report Type: Spontaneous
  Country: JP (occurrence: JP)
  Receive Date: 20170813
  Receipt Date: 20170813
  Transmission Date: 20171127
  Serious: Yes (Hospitalization, Other)
  Sender: FDA-Public Use
  Company Number: JP-MYLANLABS-2017M1048208

PATIENT

DRUGS (1)
  1. PREDNISOLONE. [Suspect]
     Active Substance: PREDNISOLONE
     Indication: IMMUNE THROMBOCYTOPENIC PURPURA
     Route: 065

REACTIONS (8)
  - Septic shock [Recovering/Resolving]
  - Acute kidney injury [Recovering/Resolving]
  - Diabetes mellitus [Recovering/Resolving]
  - Purulent pericarditis [Recovering/Resolving]
  - Infective pericardial effusion [Recovering/Resolving]
  - Cardiac tamponade [Recovering/Resolving]
  - Lung abscess [Recovering/Resolving]
  - Pneumonia [Recovering/Resolving]
